FAERS Safety Report 13715535 (Version 2)
Quarter: 2017Q3

REPORT INFORMATION
  Report Type: Report from Study
  Country: None (occurrence: DE)
  Receive Date: 20170705
  Receipt Date: 20170711
  Transmission Date: 20171127
  Serious: Yes (Disabling, Other)
  Sender: FDA-Public Use
  Company Number: DE-ABBVIE-17K-062-2028093-00

PATIENT
  Age: 58 Year
  Sex: Male

DRUGS (6)
  1. FINASTERID [Concomitant]
     Active Substance: FINASTERIDE
     Indication: BENIGN PROSTATIC HYPERPLASIA
     Route: 048
     Dates: start: 201612
  2. DUODOPA [Suspect]
     Active Substance: CARBIDOPA\LEVODOPA
     Indication: PARKINSON^S DISEASE
     Dosage: 0 ML/H, FREQUENCY 6, ONCE AS 6.0 ML/H, FREQUENCY 24 H AND AS 5.8 ML/ H, FREQUENCY 24 H.
     Route: 050
     Dates: start: 20160613
  3. B12 ANKERMANN [Concomitant]
     Indication: VITAMIN B COMPLEX DEFICIENCY
     Route: 030
     Dates: start: 20160622
  4. TAMSULOSIN [Concomitant]
     Active Substance: TAMSULOSIN
     Indication: BENIGN PROSTATIC HYPERPLASIA
     Route: 048
     Dates: start: 20160622
  5. CIPROFLOXACIN. [Concomitant]
     Active Substance: CIPROFLOXACIN
     Indication: URINARY TRACT INFECTION
     Route: 048
     Dates: start: 20161005, end: 20161012
  6. SEROQUEL [Concomitant]
     Active Substance: QUETIAPINE FUMARATE
     Indication: PSYCHOTIC DISORDER
     Route: 048
     Dates: start: 20160619

REACTIONS (5)
  - Deafness [Not Recovered/Not Resolved]
  - Vitamin B12 deficiency [Unknown]
  - Blood thyroid stimulating hormone decreased [Unknown]
  - Polyneuropathy [Not Recovered/Not Resolved]
  - Psychotic disorder [Unknown]

NARRATIVE: CASE EVENT DATE: 2016
